FAERS Safety Report 5003908-1 (Version None)
Quarter: 2006Q2

REPORT INFORMATION
  Report Type: 
  Country: None (occurrence: None)
  Receive Date: 20060515
  Receipt Date: 20060504
  Transmission Date: 20061013
  Serious: No
  Sender: FDA-Public Use
  Company Number: 06H-087-0306098-00

PATIENT
  Age: 21 Year
  Sex: Male
  Weight: 35 kg

DRUGS (7)
  1. FENTANYL CITRATE [Suspect]
     Indication: SEDATIVE THERAPY
     Dosage: 3 MCG/KG, INTRAVENOUS
     Route: 042
  2. ACETIC ACID RINGER'S SOLUTION (EUFUSOL) [Concomitant]
  3. PROPOFOL [Concomitant]
  4. OXYGEN (OXYGEN) [Concomitant]
  5. NITROUS OXIDE W/ OXYGEN [Concomitant]
  6. SEVOFLURANE [Concomitant]
  7. OXYGEN [Concomitant]

REACTIONS (2)
  - APNOEA [None]
  - RESPIRATORY DEPRESSION [None]
